FAERS Safety Report 24584485 (Version 1)
Quarter: 2024Q4

REPORT INFORMATION
  Report Type: Spontaneous
  Country: GB (occurrence: GB)
  Receive Date: 20241106
  Receipt Date: 20241106
  Transmission Date: 20250114
  Serious: Yes (Other)
  Sender: PFIZER
  Company Number: None

PATIENT
  Age: 88 Year
  Sex: Male

DRUGS (7)
  1. TAFAMIDIS [Suspect]
     Active Substance: TAFAMIDIS
     Indication: Cardiac amyloidosis
     Dosage: 61 MG
     Dates: end: 20241030
  2. APIXABAN [Concomitant]
     Active Substance: APIXABAN
  3. RAMIPRIL [Concomitant]
     Active Substance: RAMIPRIL
  4. BISOPROLOL [Concomitant]
     Active Substance: BISOPROLOL\BISOPROLOL FUMARATE
  5. BUMETANIDE [Concomitant]
     Active Substance: BUMETANIDE
  6. DONEPEZIL [Concomitant]
     Active Substance: DONEPEZIL
  7. MIRABEGRON [Concomitant]
     Active Substance: MIRABEGRON

REACTIONS (2)
  - Dysphagia [Recovered/Resolved]
  - Product size issue [Recovered/Resolved]

NARRATIVE: CASE EVENT DATE: 20241020
